FAERS Safety Report 21887469 (Version 1)
Quarter: 2023Q1

REPORT INFORMATION
  Report Type: Spontaneous
  Country: US (occurrence: US)
  Receive Date: 20230120
  Receipt Date: 20230120
  Transmission Date: 20230417
  Serious: Yes (Hospitalization, Other)
  Sender: FDA-Public Use
  Company Number: US-drreddys-LIT/USA/23/0160086

PATIENT
  Age: 50 Year
  Sex: Female

DRUGS (6)
  1. AMIODARONE HYDROCHLORIDE [Suspect]
     Active Substance: AMIODARONE HYDROCHLORIDE
     Indication: Ventricular arrhythmia
  2. COLCHICINE [Suspect]
     Active Substance: COLCHICINE
     Indication: Product used for unknown indication
  3. HEPARIN SODIUM [Suspect]
     Active Substance: HEPARIN SODIUM
     Indication: Anticoagulant therapy
  4. LIDOCAINE [Suspect]
     Active Substance: LIDOCAINE
     Indication: Ventricular arrhythmia
  5. EPINEPHRINE [Suspect]
     Active Substance: EPINEPHRINE
     Indication: Ventricular arrhythmia
  6. METHYLPREDNISOLONE [Concomitant]
     Active Substance: METHYLPREDNISOLONE
     Indication: Immune-mediated myocarditis
     Route: 042

REACTIONS (6)
  - Haemodynamic instability [Unknown]
  - Diplopia [Recovered/Resolved]
  - Melaena [Unknown]
  - Heparin-induced thrombocytopenia [Unknown]
  - Drug ineffective [Unknown]
  - Product use in unapproved indication [Unknown]
